FAERS Safety Report 10474792 (Version 2)
Quarter: 2014Q3

REPORT INFORMATION
  Report Type: Spontaneous
  Country: US (occurrence: US)
  Receive Date: 20140925
  Receipt Date: 20140925
  Transmission Date: 20150326
  Serious: Yes (Hospitalization)
  Sender: FDA-Public Use
  Company Number: US-UNITED THERAPEUTICS-UNT-2014-000702

PATIENT
  Sex: Female
  Weight: 73.92 kg

DRUGS (3)
  1. TRACLEER [Concomitant]
     Active Substance: BOSENTAN\BOSENTAN MONOHYDRATE
     Indication: PRODUCT USED FOR UNKNOWN INDICATION
     Route: 065
  2. REMODULIN [Suspect]
     Active Substance: TREPROSTINIL
     Indication: PULMONARY ARTERIAL HYPERTENSION
     Dosage: 0.160 ?G, CONTINUING
     Route: 058
     Dates: start: 20071022
  3. REMODULIN [Suspect]
     Active Substance: TREPROSTINIL
     Dosage: 0.160 ?G/KG, UNK
     Route: 058
     Dates: start: 20071022

REACTIONS (3)
  - Dehydration [Unknown]
  - Gastroenteritis viral [Unknown]
  - Disease progression [Unknown]

NARRATIVE: CASE EVENT DATE: 2014
